FAERS Safety Report 4499341-1 (Version None)
Quarter: 2004Q4

REPORT INFORMATION
  Report Type: 
  Country: None (occurrence: None)
  Receive Date: 20041111
  Receipt Date: 20040719
  Transmission Date: 20050328
  Serious: Yes (Disabling, Other)
  Sender: FDA-Public Use
  Company Number: US-MERCK-0407USA01586

PATIENT
  Age: 64 Year
  Sex: Female
  Weight: 62 kg

DRUGS (8)
  1. FOSAMAX [Suspect]
     Indication: OSTEOPOROSIS
     Route: 048
     Dates: start: 20040401, end: 20040701
  2. FOSAMAX [Suspect]
     Route: 048
     Dates: start: 20000101, end: 20040101
  3. SYNTHROID [Concomitant]
     Route: 065
  4. NIACIN [Concomitant]
     Route: 065
  5. CALTRATE [Concomitant]
     Route: 065
  6. BAYCOL [Suspect]
     Route: 065
     Dates: start: 20010101
  7. PEPCID [Concomitant]
     Route: 065
  8. TYLENOL [Concomitant]
     Route: 065

REACTIONS (6)
  - ARTHRALGIA [None]
  - DYSPEPSIA [None]
  - DYSPHAGIA [None]
  - MUSCLE CRAMP [None]
  - MUSCULAR WEAKNESS [None]
  - OESOPHAGITIS [None]
